FAERS Safety Report 15351407 (Version 3)
Quarter: 2018Q4

REPORT INFORMATION
  Report Type: Spontaneous
  Country: JP (occurrence: JP)
  Receive Date: 20180905
  Receipt Date: 20181003
  Transmission Date: 20190204
  Serious: Yes (Other)
  Sender: FDA-Public Use
  Company Number: JP-009507513-1808JPN000842J

PATIENT
  Age: 55 Year
  Sex: Male

DRUGS (10)
  1. CANCIDAS [Suspect]
     Active Substance: CASPOFUNGIN ACETATE
     Dosage: 50 MG, UNK
     Route: 042
     Dates: start: 20180714
  2. NEUTROGIN [Concomitant]
     Active Substance: LENOGRASTIM
     Dosage: 350 MG, UNK
     Route: 042
     Dates: start: 20180710
  3. SAMTIREL [Suspect]
     Active Substance: ATOVAQUONE
     Dosage: 10 ML, UNK
     Route: 048
     Dates: start: 20180707
  4. ACELIO [Concomitant]
     Active Substance: ACETAMINOPHEN
     Dosage: 1000 MG, UNK
     Route: 042
     Dates: start: 20180704
  5. CUBICIN [Suspect]
     Active Substance: DAPTOMYCIN
     Dosage: 420 MG, UNK
     Route: 042
     Dates: start: 20180726
  6. PREVYMIS [Suspect]
     Active Substance: LETERMOVIR
     Dosage: 480 MG, QD
     Route: 041
     Dates: start: 20180718, end: 20180722
  7. PREVYMIS [Suspect]
     Active Substance: LETERMOVIR
     Dosage: 480 MG, UNK
     Route: 048
     Dates: start: 20180723
  8. NEXIUM [Suspect]
     Active Substance: ESOMEPRAZOLE MAGNESIUM
     Dosage: UNK
     Route: 048
  9. PROGRAF [Suspect]
     Active Substance: TACROLIMUS\TACROLIMUS ANHYDROUS
     Dosage: 1.2 MG, UNK
     Route: 042
     Dates: start: 20180708
  10. FINIBAX [Suspect]
     Active Substance: DORIPENEM MONOHYDRATE
     Dosage: 1 G, BID
     Route: 042
     Dates: start: 20180725

REACTIONS (2)
  - Renal impairment [Recovering/Resolving]
  - Hepatic function abnormal [Recovering/Resolving]

NARRATIVE: CASE EVENT DATE: 20180722
